FAERS Safety Report 10791455 (Version 2)
Quarter: 2015Q2

REPORT INFORMATION
  Report Type: Spontaneous
  Country: BR (occurrence: BR)
  Receive Date: 20150213
  Receipt Date: 20150514
  Transmission Date: 20150821
  Serious: Yes (Other)
  Sender: FDA-Public Use
  Company Number: BR-ASTRAZENECA-2015SE12742

PATIENT
  Age: 73 Year
  Sex: Female

DRUGS (9)
  1. FORXIGA [Suspect]
     Active Substance: DAPAGLIFLOZIN
     Indication: TYPE 2 DIABETES MELLITUS
     Route: 048
     Dates: start: 201408, end: 201501
  2. FORXIGA [Suspect]
     Active Substance: DAPAGLIFLOZIN
     Indication: TYPE 2 DIABETES MELLITUS
     Route: 048
     Dates: start: 201501
  3. INSULIN LANTUS 38 UI [Concomitant]
     Indication: BLOOD GLUCOSE FLUCTUATION
     Dosage: AS REQUIRED
     Route: 058
     Dates: start: 2014
  4. INSULIN APIDRA [Concomitant]
     Indication: BLOOD GLUCOSE FLUCTUATION
     Dosage: AS REQUIRED
     Route: 058
     Dates: start: 2014
  5. CRESTOR [Suspect]
     Active Substance: ROSUVASTATIN CALCIUM
     Indication: BLOOD CHOLESTEROL
     Route: 048
     Dates: start: 201412
  6. LIPLESS [Suspect]
     Active Substance: CIPROFIBRATE
     Indication: BLOOD TRIGLYCERIDES
     Route: 048
     Dates: start: 2014, end: 201412
  7. CRESTOR [Suspect]
     Active Substance: ROSUVASTATIN CALCIUM
     Indication: BLOOD TRIGLYCERIDES
     Route: 048
     Dates: start: 201412
  8. METFORMIN [Suspect]
     Active Substance: METFORMIN HYDROCHLORIDE
     Indication: TYPE 2 DIABETES MELLITUS
     Dosage: NON AZ PRODUCT, 850 MG, EVERY DAY
     Route: 048
     Dates: start: 2010, end: 201408
  9. LIPLESS [Suspect]
     Active Substance: CIPROFIBRATE
     Indication: BLOOD CHOLESTEROL
     Route: 048
     Dates: start: 2014, end: 201412

REACTIONS (8)
  - Weight decreased [Recovered/Resolved]
  - Blood glucose fluctuation [Recovered/Resolved]
  - Blood triglycerides increased [Recovered/Resolved]
  - Drug dose omission [Recovered/Resolved]
  - Diarrhoea [Recovered/Resolved]
  - Pain in extremity [Not Recovered/Not Resolved]
  - Blood cholesterol increased [Recovered/Resolved]
  - Hyperglycaemia [Recovered/Resolved]

NARRATIVE: CASE EVENT DATE: 2010
